FAERS Safety Report 15135314 (Version 1)
Quarter: 2018Q3

REPORT INFORMATION
  Report Type: Spontaneous
  Country: US (occurrence: US)
  Receive Date: 20180712
  Receipt Date: 20180712
  Transmission Date: 20181010
  Serious: Yes (Hospitalization)
  Sender: FDA-Public Use
  Company Number: US-B. BRAUN MEDICAL INC.-2051879

PATIENT
  Age: 71 Year
  Sex: Male
  Weight: 90.7 kg

DRUGS (1)
  1. LIDOCAINE HYDROCHLORIDE AND DEXTROSE [Suspect]
     Active Substance: DEXTROSE\LIDOCAINE HYDROCHLORIDE

REACTIONS (11)
  - Dysarthria [None]
  - Tremor [None]
  - Toxicity to various agents [None]
  - Cerebral disorder [None]
  - Mental status changes [None]
  - Amnesia [None]
  - Delirium [None]
  - Drug level increased [None]
  - Electroencephalogram abnormal [None]
  - Confusional state [None]
  - Ventricular tachycardia [None]
